FAERS Safety Report 11230919 (Version 1)
Quarter: 2015Q2

REPORT INFORMATION
  Report Type: Spontaneous
  Country: TW (occurrence: None)
  Receive Date: 20150629
  Receipt Date: 20150629
  Transmission Date: 20150821
  Serious: Yes (Hospitalization)
  Sender: FDA-Public Use
  Company Number: UCM201506-000426

PATIENT
  Age: 45 Year
  Sex: Female

DRUGS (7)
  1. FLURAZEPAM (FLURAZEPAM) [Suspect]
     Active Substance: FLURAZEPAM HYDROCHLORIDE
  2. ZALEPLON ZALEPLON [Suspect]
     Active Substance: ZALEPLON
  3. LORAZEPAM (LORAZEPAM) (LORAZEPAM) [Suspect]
     Active Substance: LORAZEPAM
  4. SULPIRIDE (SULPIRIDE) [Suspect]
     Active Substance: SULPIRIDE
  5. MIRTAZAPINE (MIRTAZAPINE) (MIRTAZAPINE) [Suspect]
     Active Substance: MIRTAZAPINE
  6. QUETIAPINE (QUETIAPINE) (QUETIAPINE) [Suspect]
     Active Substance: QUETIAPINE
  7. HYDROXYZINE [Suspect]
     Active Substance: HYDROXYZINE\HYDROXYZINE HYDROCHLORIDE

REACTIONS (3)
  - Ventricular fibrillation [None]
  - Toxicity to various agents [None]
  - Overdose [None]
